FAERS Safety Report 22944980 (Version 6)
Quarter: 2024Q3

REPORT INFORMATION
  Report Type: Spontaneous
  Country: US (occurrence: US)
  Receive Date: 20230914
  Receipt Date: 20240913
  Transmission Date: 20241016
  Serious: No
  Sender: PFIZER
  Company Number: US-PFIZER INC-PV202300098924

PATIENT
  Age: 77 Year
  Sex: Female
  Weight: 77.098 kg

DRUGS (2)
  1. IBRANCE [Suspect]
     Active Substance: PALBOCICLIB
     Indication: Breast cancer stage IV
     Dosage: DAY 1-21 OF A 28 DAY CYCLE
     Route: 048
     Dates: start: 20230626
  2. EXEMESTANE [Concomitant]
     Active Substance: EXEMESTANE
     Indication: Breast cancer stage IV
     Dosage: Q 28 DAYS
     Dates: start: 20230626

REACTIONS (1)
  - Brain fog [Unknown]
